FAERS Safety Report 6828073-7 (Version None)
Quarter: 2010Q3

REPORT INFORMATION
  Report Type: 
  Country: None (occurrence: None)
  Receive Date: 20100708
  Receipt Date: 20100708
  Transmission Date: 20110219
  Serious: Yes (Hospitalization)
  Sender: FDA-Public Use
  Company Number: None

PATIENT
  Age: 14 Year
  Sex: Female

DRUGS (5)
  1. LAMOTRIGINE [Suspect]
     Indication: CONVULSION
     Dosage: 25MG DAILY PO
     Route: 048
     Dates: start: 20100417, end: 20100423
  2. LAMOTRIGINE [Suspect]
     Indication: CONVULSION
     Dosage: 50MG DAILY PO
     Route: 048
     Dates: start: 20100424, end: 20100430
  3. DEPAKOTE [Concomitant]
  4. INTUNIV [Concomitant]
  5. LEXAPRO [Concomitant]

REACTIONS (4)
  - BLISTER [None]
  - ERYTHEMA MULTIFORME [None]
  - RASH PAPULAR [None]
  - STEVENS-JOHNSON SYNDROME [None]
